FAERS Safety Report 25219550 (Version 1)
Quarter: 2025Q2

REPORT INFORMATION
  Report Type: Report from Study
  Country: US (occurrence: US)
  Receive Date: 20250421
  Receipt Date: 20250421
  Transmission Date: 20250716
  Serious: Yes (Other)
  Sender: GLAXOSMITHKLINE
  Company Number: US-GLAXOSMITHKLINE-US2014GSK022041

PATIENT

DRUGS (1)
  1. MEPOLIZUMAB [Suspect]
     Active Substance: MEPOLIZUMAB
     Indication: Hypereosinophilic syndrome
     Route: 042
     Dates: start: 20140610

REACTIONS (1)
  - Anaplastic large cell lymphoma T- and null-cell types [Not Recovered/Not Resolved]

NARRATIVE: CASE EVENT DATE: 20141013
